FAERS Safety Report 23408366 (Version 1)
Quarter: 2024Q1

REPORT INFORMATION
  Report Type: Spontaneous
  Country: FR (occurrence: FR)
  Receive Date: 20240117
  Receipt Date: 20240117
  Transmission Date: 20240410
  Serious: Yes (Hospitalization, Other)
  Sender: FDA-Public Use
  Company Number: None

PATIENT
  Age: 0 Year
  Sex: Male

DRUGS (2)
  1. VALGANCICLOVIR [Suspect]
     Active Substance: VALGANCICLOVIR
     Indication: Congenital cytomegalovirus infection
     Dosage: 7 MG/KG OR 12 MG?50 MG/MLL, DILUTED IN 0.9 PERCENT NACL FOR A DOSE OF 3.8 MG/ML INFUSED OVER 1.5...
     Route: 042
     Dates: start: 20231030, end: 20231030
  2. GANCICLOVIR [Suspect]
     Active Substance: GANCICLOVIR
     Indication: Congenital cytomegalovirus infection
     Dosage: EVERY 12 HOURS?STARTED ON DAY 0 AND CONTINUED FOR 6 WEEKS AT A DOSE OF 12 MG X 2 PER DAY BY PERI...
     Route: 042
     Dates: start: 20231007, end: 20231121

REACTIONS (2)
  - Neonatal hypoxia [Recovered/Resolved]
  - Product administration error [Recovering/Resolving]

NARRATIVE: CASE EVENT DATE: 20231030
